FAERS Safety Report 16862363 (Version 1)
Quarter: 2019Q3

REPORT INFORMATION
  Report Type: Report from Study
  Country: BR (occurrence: BR)
  Receive Date: 20190927
  Receipt Date: 20190927
  Transmission Date: 20191005
  Serious: Yes (Other)
  Sender: FDA-Public Use
  Company Number: BR-UCBSA-2019029404

PATIENT
  Sex: Female
  Weight: 75 kg

DRUGS (11)
  1. OMEPRAZOLE. [Concomitant]
     Active Substance: OMEPRAZOLE
     Indication: PRODUCT USED FOR UNKNOWN INDICATION
     Dosage: 1 TABLET A DAY
  2. CARVEDILOL. [Concomitant]
     Active Substance: CARVEDILOL
     Indication: ARRHYTHMIA
     Dosage: 2 DOSAGE FORM A DAY
     Route: 048
     Dates: start: 2014
  3. ATLANSIL [AMIODARONE] [Concomitant]
     Indication: ARRHYTHMIA
     Dosage: 1 DOSAGE FORM A DAY
     Route: 048
     Dates: start: 2014
  4. AAS [Concomitant]
     Active Substance: ASPIRIN
     Indication: CARDIAC DISORDER
     Dosage: 1 DOSAGE FORM A DAY
     Route: 048
     Dates: start: 2014
  5. METHOTREXATE. [Concomitant]
     Active Substance: METHOTREXATE
     Indication: RHEUMATOID ARTHRITIS
     Dosage: 5 TABLETS PER WEEK
     Route: 048
     Dates: start: 2004
  6. SINVASTATINA [Concomitant]
     Active Substance: SIMVASTATIN
     Indication: CARDIAC DISORDER
     Dosage: 1 DOSAGE FORM A DAY
     Route: 048
     Dates: start: 2014
  7. METHOTREXATE. [Concomitant]
     Active Substance: METHOTREXATE
     Dosage: 6 DOSAGE FORM, WEEKLY (QW)
     Route: 048
  8. METHOTREXATO [METHOTREXATE SODIUM] [Concomitant]
     Indication: RHEUMATOID ARTHRITIS
     Dosage: 25 MILLIGRAM, WEEKLY (QW)
     Route: 048
     Dates: start: 2004
  9. CERTOLIZUMAB PEGOL [Suspect]
     Active Substance: CERTOLIZUMAB PEGOL
     Indication: RHEUMATOID ARTHRITIS
     Dosage: 1 SYRINGE OF 200 MILLIGRAM, EV 2 WEEKS(QOW)
     Route: 058
     Dates: start: 2017, end: 20190717
  10. CLOPIDOGREL [Concomitant]
     Active Substance: CLOPIDOGREL BISULFATE
     Indication: CARDIAC DISORDER
     Dosage: 1 DOSAGE FORM A DAY
     Route: 048
     Dates: start: 2014
  11. VASTAREL [Concomitant]
     Active Substance: TRIMETAZIDINE DIHYDROCHLORIDE
     Indication: PRODUCT USED FOR UNKNOWN INDICATION
     Dosage: 2 TABLET A DAY

REACTIONS (8)
  - Needle issue [Unknown]
  - Fatigue [Unknown]
  - Unevaluable event [Unknown]
  - Emphysema [Recovered/Resolved]
  - Application site pain [Recovered/Resolved]
  - Dyspnoea [Recovered/Resolved]
  - Application site laceration [Not Recovered/Not Resolved]
  - Movement disorder [Unknown]

NARRATIVE: CASE EVENT DATE: 2017
